FAERS Safety Report 16051954 (Version 1)
Quarter: 2019Q1

REPORT INFORMATION
  Report Type: Spontaneous
  Country: US (occurrence: US)
  Receive Date: 20190308
  Receipt Date: 20190308
  Transmission Date: 20190418
  Serious: Yes (Life-Threatening, Hospitalization)
  Sender: FDA-Public Use
  Company Number: US-ASTRAZENECA-2019SE36551

PATIENT
  Age: 26 Year
  Sex: Female

DRUGS (8)
  1. PRENATAL VITAMINS [Suspect]
     Active Substance: VITAMINS
     Route: 048
  2. QUETIAPINE. [Suspect]
     Active Substance: QUETIAPINE
     Route: 048
  3. TYLENOL [Suspect]
     Active Substance: ACETAMINOPHEN
     Route: 048
  4. BUPRENORPHINE. [Suspect]
     Active Substance: BUPRENORPHINE
     Route: 065
  5. FENTANYL. [Suspect]
     Active Substance: FENTANYL
     Route: 065
  6. METHAMPHETAMINE [Suspect]
     Active Substance: METHAMPHETAMINE
     Route: 065
  7. AMFETAMINE [Suspect]
     Active Substance: AMPHETAMINE
     Route: 065
  8. ACETYLSALICYLIC ACID [Suspect]
     Active Substance: ASPIRIN
     Route: 048

REACTIONS (5)
  - Exposure during pregnancy [Unknown]
  - Suicide attempt [Unknown]
  - Intentional overdose [Unknown]
  - Respiratory failure [Unknown]
  - Loss of consciousness [Unknown]
